FAERS Safety Report 18197355 (Version 4)
Quarter: 2020Q4

REPORT INFORMATION
  Report Type: Spontaneous
  Country: MY (occurrence: MY)
  Receive Date: 20200826
  Receipt Date: 20201002
  Transmission Date: 20210113
  Serious: Yes (Other)
  Sender: FDA-Public Use
  Company Number: MY-SA-2020SA220891

PATIENT

DRUGS (2)
  1. APIDRA SOLOSTAR [Suspect]
     Active Substance: INSULIN GLULISINE
     Dosage: UNK
     Route: 065
  2. INSULIN GLARGINE [Suspect]
     Active Substance: INSULIN GLARGINE
     Dosage: UNK UNK, AC
     Route: 065

REACTIONS (4)
  - Product packaging confusion [Unknown]
  - Wrong product administered [Unknown]
  - Diabetes mellitus inadequate control [Unknown]
  - Diabetic ketoacidosis [Recovered/Resolved]
